FAERS Safety Report 8968198 (Version 1)
Quarter: 2012Q4

REPORT INFORMATION
  Report Type: 
  Country: PL (occurrence: PL)
  Receive Date: 20121217
  Receipt Date: 20121217
  Transmission Date: 20130627
  Serious: Yes (Other)
  Sender: FDA-Public Use
  Company Number: PHHY2012PL107388

PATIENT
  Age: 35 Year
  Sex: Female
  Weight: 67 kg

DRUGS (4)
  1. GLIVEC [Suspect]
     Indication: CHRONIC MYELOID LEUKAEMIA
     Dosage: 400 mg, per day
     Route: 048
     Dates: start: 20111220, end: 20120509
  2. GLIVEC [Suspect]
     Dosage: 400 mg, per day
     Dates: start: 20120514, end: 20120926
  3. GLIVEC [Suspect]
     Dosage: 800 mg, per day
  4. HU [Concomitant]
     Dosage: 1 g, per day
     Dates: start: 20111021, end: 20111219

REACTIONS (5)
  - Hypersensitivity [Recovered/Resolved]
  - Rash maculo-papular [Recovered/Resolved]
  - Exfoliative rash [Recovered/Resolved]
  - Abdominal pain [Unknown]
  - Arthralgia [Unknown]
